FAERS Safety Report 9212408 (Version 2)
Quarter: 2013Q2

REPORT INFORMATION
  Report Type: Spontaneous
  Country: US (occurrence: US)
  Receive Date: 20130404
  Receipt Date: 20130506
  Transmission Date: 20140414
  Serious: No
  Sender: FDA-Public Use
  Company Number: US-AMGEN-USASP2013018732

PATIENT
  Age: 70 Year
  Sex: Female

DRUGS (7)
  1. ENBREL [Suspect]
     Indication: RHEUMATOID ARTHRITIS
     Dosage: 50 MG, QWK
     Route: 058
     Dates: start: 20130305
  2. ADVAIR [Concomitant]
     Dosage: UNK
  3. ASPIRIN [Concomitant]
     Dosage: UNK
  4. BENICAR HCT [Concomitant]
     Dosage: UNK
  5. CALCIUM + VIT D [Concomitant]
     Dosage: UNK
  6. JANUMET                            /06535301/ [Concomitant]
     Dosage: UNK
  7. FLAXSEED OIL [Concomitant]
     Dosage: UNK

REACTIONS (2)
  - Diarrhoea [Recovering/Resolving]
  - Diabetes mellitus [Not Recovered/Not Resolved]
